FAERS Safety Report 16206748 (Version 1)
Quarter: 2019Q2

REPORT INFORMATION
  Report Type: Spontaneous
  Country: US (occurrence: US)
  Receive Date: 20190417
  Receipt Date: 20190417
  Transmission Date: 20190711
  Serious: No
  Sender: FDA-Public Use
  Company Number: US-IPSEN BIOPHARMACEUTICALS, INC.-2019-03979

PATIENT
  Sex: Female
  Weight: 70.76 kg

DRUGS (4)
  1. SIMVASTATIN. [Concomitant]
     Active Substance: SIMVASTATIN
     Indication: BLOOD CHOLESTEROL
     Dosage: THE PATIENT STATED SHE STARTED THIS YEARS AND YEARS AGO.
     Route: 048
  2. SOMATULINE DEPOT [Suspect]
     Active Substance: LANREOTIDE ACETATE
     Indication: CARCINOID SYNDROME
     Route: 065
     Dates: start: 2018
  3. LEVOTHYROXINE. [Concomitant]
     Active Substance: LEVOTHYROXINE
     Indication: HYPOTHYROIDISM
     Dosage: THE PATIENT STATED SHE STARTED THIS YEARS AND YEARS AGO.
     Route: 048
  4. SUTENT [Concomitant]
     Active Substance: SUNITINIB MALATE

REACTIONS (9)
  - Dry skin [Recovered/Resolved]
  - Haemorrhoids [Recovered/Resolved]
  - Asthenia [Not Recovered/Not Resolved]
  - Skin reaction [Recovered/Resolved]
  - Hypothyroidism [Unknown]
  - Dry mouth [Recovered/Resolved]
  - Stomatitis [Recovered/Resolved]
  - Injection site pain [Recovered/Resolved]
  - Fatigue [Not Recovered/Not Resolved]
